FAERS Safety Report 5619122-2 (Version None)
Quarter: 2008Q1

REPORT INFORMATION
  Report Type: 
  Country: None (occurrence: None)
  Receive Date: 20080205
  Receipt Date: 20080122
  Transmission Date: 20080703
  Serious: Yes (Hospitalization)
  Sender: FDA-Public Use
  Company Number: 230834J08USA

PATIENT
  Age: 38 Year
  Sex: Male

DRUGS (8)
  1. REBIF [Suspect]
     Indication: MULTIPLE SCLEROSIS
     Dosage: 44 MCG, 3 IN 1 WEEKS, SUBCUTANEOUS
     Route: 058
     Dates: start: 20050303, end: 20070917
  2. REBIF [Suspect]
     Indication: MULTIPLE SCLEROSIS
     Dosage: 44 MCG, 3 IN 1 WEEKS, SUBCUTANEOUS
     Route: 058
     Dates: start: 20071106
  3. CALCIUM WITH VITAMIN D (VITACAL) [Concomitant]
  4. ACTONEL [Concomitant]
  5. EFFEXOR XR [Concomitant]
  6. FIBER PILL (ALL OTHER THERAPEUTIC PRODUCTS) [Concomitant]
  7. MULTIVITAMIN (MULTIVITAMIN) [Concomitant]
  8. NEXIUM [Concomitant]

REACTIONS (3)
  - DECUBITUS ULCER [None]
  - MUSCLE SPASTICITY [None]
  - PYREXIA [None]
